FAERS Safety Report 13505229 (Version 2)
Quarter: 2017Q2

REPORT INFORMATION
  Report Type: Spontaneous
  Country: BG (occurrence: BG)
  Receive Date: 20170502
  Receipt Date: 20170505
  Transmission Date: 20170830
  Serious: Yes (Other)
  Sender: FDA-Public Use
  Company Number: BG-BAYER-2017-077829

PATIENT
  Sex: Female

DRUGS (1)
  1. ASPIRIN PROTECT 100 MG [Suspect]
     Active Substance: ASPIRIN
     Indication: PROPHYLAXIS
     Dosage: 100 MG, QD

REACTIONS (7)
  - Speech disorder [None]
  - Monoparesis [None]
  - Somnolence [None]
  - Hyporesponsive to stimuli [None]
  - Aphasia [None]
  - Hypotonia [None]
  - Ischaemic cerebral infarction [None]
